FAERS Safety Report 5284384-0 (Version None)
Quarter: 2007Q1

REPORT INFORMATION
  Report Type: 
  Country: None (occurrence: None)
  Receive Date: 20070328
  Receipt Date: 20070316
  Transmission Date: 20070707
  Serious: No
  Sender: FDA-Public Use
  Company Number: 261240

PATIENT
  Sex: Female

DRUGS (3)
  1. NORDITROPIN [Suspect]
     Indication: DRUG USE FOR UNKNOWN INDICATION
     Dosage: 0.1 UNK, QD; INTRAMUSCULAR
     Route: 030
     Dates: end: 20070221
  2. DHEA (PRASTERONE) [Concomitant]
  3. PREGNENOLONE (PREGNENOLONE) [Concomitant]

REACTIONS (2)
  - DRY MOUTH [None]
  - TACHYCARDIA [None]
